FAERS Safety Report 4575263-2 (Version None)
Quarter: 2005Q1

REPORT INFORMATION
  Report Type: 
  Country: None (occurrence: None)
  Receive Date: 20050209
  Receipt Date: 20030217
  Transmission Date: 20050727
  Serious: Yes (Other)
  Sender: FDA-Public Use
  Company Number: AU-ABBOTT-05P-008-0289207-00

PATIENT

DRUGS (2)
  1. REDUCTIL [Suspect]
     Indication: DRUG USE FOR UNKNOWN INDICATION
  2. METFORMIN HCL [Concomitant]

REACTIONS (1)
  - DIABETIC COMA [None]
